FAERS Safety Report 4479343-1 (Version None)
Quarter: 2004Q4

REPORT INFORMATION
  Report Type: 
  Country: None (occurrence: None)
  Receive Date: 20041015
  Receipt Date: 20040928
  Transmission Date: 20050328
  Serious: No
  Sender: FDA-Public Use
  Company Number: A0527924A

PATIENT
  Age: 38 Year
  Sex: Male
  Weight: 61.6892 kg

DRUGS (1)
  1. WELLBUTRIN [Suspect]
     Dosage: SEE DOSAGE TEXT/ORAL
     Route: 048
     Dates: start: 20040913, end: 20040922

REACTIONS (3)
  - ABDOMINAL PAIN [None]
  - FALL [None]
  - GRAND MAL CONVULSION [None]
